FAERS Safety Report 9657599 (Version 2)
Quarter: 2013Q4

REPORT INFORMATION
  Report Type: Spontaneous
  Country: US (occurrence: US)
  Receive Date: 20131030
  Receipt Date: 20131030
  Transmission Date: 20140711
  Serious: No
  Sender: FDA-Public Use
  Company Number: US-PURDUE-USA-2010-0077983

PATIENT
  Sex: Male

DRUGS (1)
  1. OXYCODONE HYDROCHLORIDE (SIMILAR TO NDA 20-553) [Suspect]
     Indication: PAIN

REACTIONS (3)
  - Drug withdrawal syndrome [Unknown]
  - Pain [Unknown]
  - Drug ineffective [Unknown]
